FAERS Safety Report 9821173 (Version 2)
Quarter: 2014Q1

REPORT INFORMATION
  Report Type: Spontaneous
  Country: US (occurrence: US)
  Receive Date: 20140116
  Receipt Date: 20140130
  Transmission Date: 20141002
  Serious: Yes (Other)
  Sender: FDA-Public Use
  Company Number: US-RB-062541-14

PATIENT
  Age: 29 Year
  Sex: Female

DRUGS (4)
  1. BUPRENORPHINE GENERIC [Suspect]
     Dosage: WAS CUTTING INTO PIECES AND TAKING VARIOUS PIECES THROUGHOUT THE DAY. TAPERED FROM 16 TO 10 MG DAILY
     Route: 060
     Dates: end: 20131229
  2. BUPRENORPHINE GENERIC [Suspect]
     Indication: DRUG DEPENDENCE
     Route: 060
     Dates: start: 201401
  3. NICOTINE [Suspect]
     Indication: NICOTINE DEPENDENCE
     Dosage: 3-4 CIGARETTES PER DAY
     Route: 055
  4. SUBOXONE FILM [Suspect]
     Indication: DRUG DEPENDENCE
     Dosage: TOOK 10 MG DAILY
     Route: 065
     Dates: start: 20131230, end: 201401

REACTIONS (4)
  - Wrong technique in drug usage process [Not Recovered/Not Resolved]
  - Maternal exposure during pregnancy [Recovered/Resolved]
  - Vasa praevia [Recovered/Resolved]
  - Premature delivery [Recovered/Resolved]
